FAERS Safety Report 7635906-3 (Version None)
Quarter: 2011Q3

REPORT INFORMATION
  Report Type: 
  Country: None (occurrence: None)
  Receive Date: 20110726
  Receipt Date: 20110713
  Transmission Date: 20111222
  Serious: Yes (Hospitalization, Other)
  Sender: FDA-Public Use
  Company Number: CA-ELI_LILLY_AND_COMPANY-CA201107003348

PATIENT
  Sex: Male

DRUGS (10)
  1. ZYPREXA [Suspect]
     Indication: SCHIZOPHRENIA, PARANOID TYPE
     Dosage: 20 MG, QD
     Dates: start: 19990303, end: 20030513
  2. ASPIRIN [Concomitant]
  3. RISPERDAL [Concomitant]
  4. HYDRA-ZIDE [Concomitant]
  5. MONOCOR [Concomitant]
  6. ZYBAN [Concomitant]
  7. ATIVAN [Concomitant]
  8. LOPRESSOR [Concomitant]
  9. ALTACE [Concomitant]
  10. ADALAT [Concomitant]

REACTIONS (11)
  - BLOOD CORTISOL ABNORMAL [None]
  - DIABETES MELLITUS [None]
  - INTRAOCULAR PRESSURE INCREASED [None]
  - TYPE 2 DIABETES MELLITUS [None]
  - PARAESTHESIA [None]
  - DYSLIPIDAEMIA [None]
  - HEPATIC STEATOSIS [None]
  - TACHYCARDIA [None]
  - ALANINE AMINOTRANSFERASE INCREASED [None]
  - ASPARTATE AMINOTRANSFERASE INCREASED [None]
  - WEIGHT INCREASED [None]
